FAERS Safety Report 10948092 (Version 2)
Quarter: 2015Q2

REPORT INFORMATION
  Report Type: Spontaneous
  Country: US (occurrence: None)
  Receive Date: 20150320
  Receipt Date: 20150511
  Transmission Date: 20150821
  Serious: Yes (Hospitalization, Other)
  Sender: FDA-Public Use
  Company Number: 2015-10214

PATIENT
  Age: 74 Year
  Sex: Male
  Weight: 95.2 kg

DRUGS (22)
  1. SYNTHROID [Concomitant]
     Active Substance: LEVOTHYROXINE SODIUM
  2. MULTIVITAMIN /00097801/ (ASCORBIC ACID, CALCIUM PANTOTHENATE, ERGOCALCIFEROL, NICOTINAMIDE, PYRIDOXINE HYDROCHLORIDE, RETINOL, RIBOFLAVIN, THIAMINE HYDROCHLORIDE) [Concomitant]
  3. AMIODARONE [Concomitant]
     Active Substance: AMIODARONE
  4. KLOR CON (POTASSIUM CHLORIDE) [Concomitant]
  5. OMEPRAZOLE. [Concomitant]
     Active Substance: OMEPRAZOLE
  6. JANTOVEN (WARFARIN SODIUM) [Concomitant]
  7. PETROLEUM WHITE /01007601/ (PARAFFIN) [Concomitant]
  8. EYLEA [Suspect]
     Active Substance: AFLIBERCEPT
     Indication: DIABETIC RETINAL OEDEMA
  9. METHADONE HCL (METHADONE HYDROCHLORIDE) [Concomitant]
  10. ROPINIROLE HCL (ROPINIROLE HYDROCHLORIDE) [Concomitant]
  11. ASPIRIN (ACETYLSALICYLIC ACID) [Concomitant]
     Active Substance: ASPIRIN
  12. WARFARIN [Concomitant]
     Active Substance: WARFARIN
  13. HUMALOG [Concomitant]
     Active Substance: INSULIN LISPRO
  14. SENOKOT /00142201/ (SENNA ALEXANDRINA) [Concomitant]
  15. BUMETANIDE. [Concomitant]
     Active Substance: BUMETANIDE
  16. DOXYCYCLINE. [Concomitant]
     Active Substance: DOXYCYCLINE
  17. METOLAZONE. [Concomitant]
     Active Substance: METOLAZONE
  18. SPIRONOLACTONE. [Concomitant]
     Active Substance: SPIRONOLACTONE
  19. PULMICORT TURBUHALER [Concomitant]
     Active Substance: BUDESONIDE
  20. SYMBICORT [Concomitant]
     Active Substance: BUDESONIDE\FORMOTEROL FUMARATE DIHYDRATE
  21. TAMSULOSIN [Concomitant]
     Active Substance: TAMSULOSIN
  22. TRAMADOL HYDROCHLORIDE. [Concomitant]
     Active Substance: TRAMADOL HYDROCHLORIDE

REACTIONS (18)
  - Pulmonary congestion [None]
  - Fluid overload [None]
  - Urine analysis abnormal [None]
  - Pulmonary mass [None]
  - Pleural effusion [None]
  - Crepitations [None]
  - Bronchiectasis [None]
  - Blood glucose increased [None]
  - Blood urea increased [None]
  - Urine output decreased [None]
  - Pneumonia [None]
  - Urinary retention [None]
  - Hyponatraemia [None]
  - Micturition urgency [None]
  - Skin wound [None]
  - Asthenia [None]
  - Arthralgia [None]
  - Dysuria [None]

NARRATIVE: CASE EVENT DATE: 20150109
